FAERS Safety Report 16443285 (Version 1)
Quarter: 2019Q2

REPORT INFORMATION
  Report Type: Report from Study
  Country: None (occurrence: CA)
  Receive Date: 20190618
  Receipt Date: 20190618
  Transmission Date: 20190711
  Serious: Yes (Other)
  Sender: FDA-Public Use
  Company Number: CA-ABBVIE-19K-028-2775570-00

PATIENT
  Sex: Female

DRUGS (2)
  1. HUMIRA [Suspect]
     Active Substance: ADALIMUMAB
     Route: 058
  2. HUMIRA [Suspect]
     Active Substance: ADALIMUMAB
     Indication: COLITIS ULCERATIVE
     Route: 058
     Dates: start: 20110719

REACTIONS (13)
  - Neck pain [Unknown]
  - Influenza [Recovered/Resolved]
  - Pain in jaw [Unknown]
  - Migraine [Unknown]
  - Nerve injury [Not Recovered/Not Resolved]
  - Malaise [Unknown]
  - Nephrolithiasis [Not Recovered/Not Resolved]
  - Nephrolithiasis [Not Recovered/Not Resolved]
  - Ear pain [Unknown]
  - Emphysema [Unknown]
  - Eye pain [Unknown]
  - Sinusitis [Unknown]
  - Rhinalgia [Unknown]

NARRATIVE: CASE EVENT DATE: 2017
